FAERS Safety Report 6544124-1 (Version None)
Quarter: 2010Q1

REPORT INFORMATION
  Report Type: 
  Country: None (occurrence: None)
  Receive Date: 20100120
  Receipt Date: 20100118
  Transmission Date: 20100710
  Serious: Yes (Death, Hospitalization)
  Sender: FDA-Public Use
  Company Number: BR-ABBOTT-10P-020-0619916-00

PATIENT
  Sex: Female
  Weight: 52 kg

DRUGS (5)
  1. HUMIRA [Suspect]
     Indication: RHEUMATOID ARTHRITIS
     Route: 058
     Dates: end: 20100113
  2. VASOPRIL [Concomitant]
     Indication: BLOOD PRESSURE
     Dosage: 0.5
     Route: 048
  3. OSSOPAN [Concomitant]
     Indication: BONE DISORDER
     Route: 048
  4. UNKNOWN MEDICATION [Concomitant]
     Indication: BLOOD PRESSURE
  5. UNKNOWN MEDICATION [Concomitant]
     Indication: BLOOD CHOLESTEROL

REACTIONS (10)
  - ABDOMINAL PAIN UPPER [None]
  - AORTIC CALCIFICATION [None]
  - DIARRHOEA HAEMORRHAGIC [None]
  - DYSPHONIA [None]
  - HYPERTENSION [None]
  - INFECTION [None]
  - MALAISE [None]
  - SOMNOLENCE [None]
  - TREMOR [None]
  - VOMITING [None]
